FAERS Safety Report 9162241 (Version 1)
Quarter: 2013Q1

REPORT INFORMATION
  Report Type: Spontaneous
  Country: DE (occurrence: None)
  Receive Date: 20130215
  Receipt Date: 20130215
  Transmission Date: 20140127
  Serious: Yes (Other)
  Sender: FDA-Public Use
  Company Number: SYM-2013-00472

PATIENT
  Sex: 0

DRUGS (1)
  1. ELONTRIL [Suspect]
     Indication: DEPRESSION
     Route: 048

REACTIONS (1)
  - Serotonin syndrome [None]
